FAERS Safety Report 13389810 (Version 3)
Quarter: 2017Q2

REPORT INFORMATION
  Report Type: Spontaneous
  Country: US (occurrence: US)
  Receive Date: 20170331
  Receipt Date: 20170508
  Transmission Date: 20170830
  Serious: No
  Sender: FDA-Public Use
  Company Number: US-ASTRAZENECA-2017SE30661

PATIENT
  Age: 24960 Day
  Sex: Female
  Weight: 67.1 kg

DRUGS (17)
  1. METOPROLOL. [Suspect]
     Active Substance: METOPROLOL
     Route: 048
  2. BRILINTA [Suspect]
     Active Substance: TICAGRELOR
     Indication: STENT PLACEMENT
     Route: 048
     Dates: start: 201609
  3. CRESTOR [Suspect]
     Active Substance: ROSUVASTATIN CALCIUM
     Indication: BLOOD CHOLESTEROL ABNORMAL
     Route: 048
  4. CRESTOR [Suspect]
     Active Substance: ROSUVASTATIN CALCIUM
     Indication: BLOOD CHOLESTEROL ABNORMAL
     Route: 048
  5. BRILINTA [Suspect]
     Active Substance: TICAGRELOR
     Indication: ARTERIAL OCCLUSIVE DISEASE
     Route: 048
     Dates: start: 201609
  6. BRILINTA [Suspect]
     Active Substance: TICAGRELOR
     Indication: ARTERIAL OCCLUSIVE DISEASE
     Route: 048
     Dates: start: 201611
  7. VICKS NYQUIL [Concomitant]
     Active Substance: ACETAMINOPHEN\DEXTROMETHORPHAN HYDROBROMIDE\DOXYLAMINE SUCCINATE
     Indication: VIRAL UPPER RESPIRATORY TRACT INFECTION
  8. ACETAMINOPHEN. [Concomitant]
     Active Substance: ACETAMINOPHEN
     Indication: PAIN
     Dosage: 300 MG 3 TABLETS DAILY PRIOR TO STENTS
  9. LIDOCAINE. [Concomitant]
     Active Substance: LIDOCAINE
  10. METOPROLOL. [Suspect]
     Active Substance: METOPROLOL
     Dosage: UNKNOWN
     Route: 048
  11. CRESTOR [Suspect]
     Active Substance: ROSUVASTATIN CALCIUM
     Indication: BLOOD CHOLESTEROL ABNORMAL
     Route: 048
     Dates: start: 2016
  12. EPINEPHRINE. [Concomitant]
     Active Substance: EPINEPHRINE
  13. BRILINTA [Suspect]
     Active Substance: TICAGRELOR
     Indication: ARTERIAL OCCLUSIVE DISEASE
     Route: 048
  14. BABY ASPIRIN [Concomitant]
     Active Substance: ASPIRIN
     Indication: PROPHYLAXIS
     Route: 048
  15. BRILINTA [Suspect]
     Active Substance: TICAGRELOR
     Indication: STENT PLACEMENT
     Route: 048
     Dates: start: 201611
  16. BRILINTA [Suspect]
     Active Substance: TICAGRELOR
     Indication: STENT PLACEMENT
     Route: 048
  17. BACITRACIN. [Concomitant]
     Active Substance: BACITRACIN

REACTIONS (26)
  - Epistaxis [Unknown]
  - Muscular weakness [Unknown]
  - Balance disorder [Unknown]
  - Peripheral coldness [Not Recovered/Not Resolved]
  - Rhinorrhoea [Unknown]
  - Intentional product misuse [Unknown]
  - Blood disorder [Unknown]
  - Skin burning sensation [Recovered/Resolved]
  - Polyuria [Unknown]
  - Contusion [Not Recovered/Not Resolved]
  - Arthritis [Unknown]
  - Lip haemorrhage [Recovered/Resolved]
  - Body height decreased [Unknown]
  - Dry skin [Not Recovered/Not Resolved]
  - Weight increased [Unknown]
  - Hypertrichosis [Unknown]
  - Pain [Unknown]
  - Fibromyalgia [Unknown]
  - Blood cholesterol abnormal [Unknown]
  - Pain in extremity [Unknown]
  - Hypoaesthesia [Unknown]
  - Asthenia [Unknown]
  - Peripheral swelling [Not Recovered/Not Resolved]
  - Hair growth abnormal [Unknown]
  - Dysphagia [Unknown]
  - Urticaria [Unknown]

NARRATIVE: CASE EVENT DATE: 20170308
